FAERS Safety Report 9290189 (Version 4)
Quarter: 2013Q2

REPORT INFORMATION
  Report Type: Spontaneous
  Country: US (occurrence: US)
  Receive Date: 20130515
  Receipt Date: 20130624
  Transmission Date: 20140414
  Serious: Yes (Other)
  Sender: FDA-Public Use
  Company Number: US-PFIZER INC-2013146996

PATIENT
  Age: 46 Year
  Sex: Female

DRUGS (1)
  1. INLYTA [Suspect]
     Indication: METASTATIC RENAL CELL CARCINOMA
     Dosage: 5 MG, 2X/DAY
     Dates: start: 20130501

REACTIONS (11)
  - Cerebral atrophy [Unknown]
  - Brain oedema [Unknown]
  - Pyrexia [Unknown]
  - Headache [Unknown]
  - Sputum abnormal [Unknown]
  - Epistaxis [Unknown]
  - Confusional state [Unknown]
  - Amnesia [Unknown]
  - Dizziness [Unknown]
  - Balance disorder [Unknown]
  - Hypokinesia [Unknown]
